FAERS Safety Report 13465102 (Version 1)
Quarter: 2017Q2

REPORT INFORMATION
  Report Type: Spontaneous
  Country: FR (occurrence: FR)
  Receive Date: 20170421
  Receipt Date: 20170421
  Transmission Date: 20170830
  Serious: Yes (Hospitalization)
  Sender: FDA-Public Use
  Company Number: FR-BAXTER-2017BAX016722

PATIENT
  Age: 50 Year
  Sex: Female

DRUGS (9)
  1. UROMITEXAN 1 G/10 ML, SOLUTION INJECTABLE POUR PERFUSION EN FLACON [Suspect]
     Active Substance: MESNA
     Indication: SARCOMA UTERUS
     Dosage: STRENGTH 1G/10 ML IN VIAL, PERFUSION
     Route: 042
     Dates: start: 20170331, end: 20170401
  2. ADRIBLASTINE [Suspect]
     Active Substance: DOXORUBICIN
     Indication: SARCOMA UTERUS
     Dosage: LYOPHILIZED POWDER FOR PARENTERAL USE (INFUSION) IN VIAL, PERFUSION
     Route: 042
     Dates: start: 20170331, end: 20170331
  3. DOLIPRANE [Concomitant]
     Active Substance: ACETAMINOPHEN
     Indication: PAIN
     Route: 048
  4. EXACYL [Concomitant]
     Active Substance: TRANEXAMIC ACID
     Indication: HAEMORRHAGE
     Dosage: STRENGTH 1G/10ML
     Route: 048
  5. PLITICAN [Suspect]
     Active Substance: ALIZAPRIDE HYDROCHLORIDE
     Indication: PROPHYLAXIS OF NAUSEA AND VOMITING
     Route: 042
     Dates: start: 20170331, end: 20170401
  6. CACIT VITAMINE D3 [Concomitant]
     Active Substance: CALCIUM CARBONATE\CHOLECALCIFEROL
     Indication: HYPOCALCAEMIA
     Dosage: 1000MG/880 II EFFERVESCENT GRANULES FOR ORAL SOLUTION IN SACHET
     Route: 065
  7. IFOSFAMIDE EG [Suspect]
     Active Substance: IFOSFAMIDE
     Indication: SARCOMA UTERUS
     Dosage: PERFUSION
     Route: 042
     Dates: start: 20170331, end: 20170401
  8. PALONOSETRON ACCORD [Suspect]
     Active Substance: PALONOSETRON HYDROCHLORIDE
     Indication: PROPHYLAXIS OF NAUSEA AND VOMITING
     Route: 042
     Dates: start: 20170331, end: 20170401
  9. SOLU-MEDROL [Suspect]
     Active Substance: METHYLPREDNISOLONE SODIUM SUCCINATE
     Indication: ADJUVANT THERAPY
     Dosage: 120MG/2ML, LYOPHILIZED POWDER AND SOLUTION FOR INJECTION
     Route: 040
     Dates: start: 20170331, end: 20170401

REACTIONS (1)
  - Toxic encephalopathy [Recovering/Resolving]

NARRATIVE: CASE EVENT DATE: 20170401
